FAERS Safety Report 19873073 (Version 1)
Quarter: 2021Q3

REPORT INFORMATION
  Report Type: Spontaneous
  Country: BR (occurrence: BR)
  Receive Date: 20210922
  Receipt Date: 20210922
  Transmission Date: 20211014
  Serious: Yes (Other)
  Sender: FDA-Public Use
  Company Number: BR-TAKEDA-2021TUS058011

PATIENT
  Sex: Female
  Weight: 70 kg

DRUGS (1)
  1. VENVANSE [Suspect]
     Active Substance: LISDEXAMFETAMINE DIMESYLATE
     Indication: PRODUCT USED FOR UNKNOWN INDICATION
     Dosage: 22 CAPSULES, TOOK ALL THE CAPSULES AT ONCE
     Route: 065

REACTIONS (8)
  - Intentional overdose [Unknown]
  - Nausea [Unknown]
  - Suicidal ideation [Recovered/Resolved]
  - Daydreaming [Unknown]
  - Diplopia [Unknown]
  - Tremor [Unknown]
  - Heart rate increased [Recovered/Resolved]
  - Prescription drug used without a prescription [Unknown]
